FAERS Safety Report 5209227-2 (Version None)
Quarter: 2007Q1

REPORT INFORMATION
  Report Type: 
  Country: None (occurrence: None)
  Receive Date: 20070111
  Receipt Date: 20061231
  Transmission Date: 20070707
  Serious: Yes (Other)
  Sender: FDA-Public Use
  Company Number: 07H-163-0311638-00

PATIENT
  Age: 55 Year
  Sex: Male

DRUGS (2)
  1. HYDROMORPHONE HCL [Suspect]
     Indication: CHEST PAIN
     Dosage: SIX TIMES, INTRAVENOUS
     Route: 042
  2. ONDANSETRON HCL [Concomitant]

REACTIONS (1)
  - MYOCLONUS [None]
